FAERS Safety Report 5981216-X (Version None)
Quarter: 2008Q4

REPORT INFORMATION
  Report Type: 
  Country: None (occurrence: None)
  Receive Date: 20081205
  Receipt Date: 20081105
  Transmission Date: 20090506
  Serious: Yes (Other)
  Sender: FDA-Public Use
  Company Number: PHEH2008US10745

PATIENT
  Sex: Female
  Weight: 58.957 kg

DRUGS (3)
  1. PARLODEL [Suspect]
     Indication: PITUITARY TUMOUR
     Dosage: 5 MG, 5QD
     Route: 048
     Dates: start: 20080905
  2. PARLODEL [Suspect]
     Dosage: UNK
  3. BROMOCRIPTINE MESYLATE [Suspect]
     Indication: PITUITARY TUMOUR
     Dosage: 5 MG, 5 TIMES DAILY
     Dates: start: 20080905

REACTIONS (5)
  - DRUG EXPOSURE DURING PREGNANCY [None]
  - FALL [None]
  - LOSS OF CONSCIOUSNESS [None]
  - NAUSEA [None]
  - VOMITING [None]
